FAERS Safety Report 7255056-8 (Version None)
Quarter: 2011Q1

REPORT INFORMATION
  Report Type: 
  Country: None (occurrence: None)
  Receive Date: 20110129
  Receipt Date: 20100428
  Transmission Date: 20110831
  Serious: No
  Sender: FDA-Public Use
  Company Number: US-ABBOTT-10P-163-0635309-00

PATIENT
  Sex: Female

DRUGS (3)
  1. LIALDA [Concomitant]
     Indication: COLITIS ULCERATIVE
     Dates: start: 20080101
  2. HUMIRA [Suspect]
     Indication: COLITIS ULCERATIVE
     Dates: start: 20100213
  3. PREDNISONE [Concomitant]
     Indication: COLITIS ULCERATIVE
     Dosage: TAPERED WHEN HUMIRA STARTED,  THEN DISCONTINUED
     Dates: start: 20080101, end: 20100101

REACTIONS (8)
  - INJECTION SITE PRURITUS [None]
  - INJECTION SITE NODULE [None]
  - INJECTION SITE PAIN [None]
  - HAEMATOCHEZIA [None]
  - ABDOMINAL PAIN UPPER [None]
  - INJECTION SITE ERYTHEMA [None]
  - ABDOMINAL DISTENSION [None]
  - INJECTION SITE RASH [None]
